FAERS Safety Report 11017139 (Version 2)
Quarter: 2015Q2

REPORT INFORMATION
  Report Type: Spontaneous
  Country: US (occurrence: US)
  Receive Date: 20150412
  Receipt Date: 20150525
  Transmission Date: 20150821
  Serious: No
  Sender: FDA-Public Use
  Company Number: US-JNJFOC-20130904543

PATIENT
  Age: 21 Year
  Sex: Female
  Weight: 40.37 kg

DRUGS (1)
  1. ORTHO EVRA [Suspect]
     Active Substance: ETHINYL ESTRADIOL\NORELGESTROMIN
     Indication: CONTRACEPTION
     Route: 062
     Dates: start: 201308

REACTIONS (5)
  - Headache [Unknown]
  - Nausea [Unknown]
  - Inappropriate schedule of drug administration [Not Recovered/Not Resolved]
  - Therapy cessation [Recovered/Resolved]
  - Mood swings [Unknown]

NARRATIVE: CASE EVENT DATE: 201308
